FAERS Safety Report 6510977-6 (Version None)
Quarter: 2009Q4

REPORT INFORMATION
  Report Type: 
  Country: None (occurrence: None)
  Receive Date: 20091222
  Receipt Date: 20090208
  Transmission Date: 20100525
  Serious: No
  Sender: FDA-Public Use
  Company Number: US-ASTRAZENECA-2009UW03864

PATIENT
  Age: 38 Year
  Sex: Male

DRUGS (2)
  1. CRESTOR [Suspect]
     Dosage: UNKNOWN
     Route: 048
  2. UNSPECIFIED [Concomitant]
     Indication: BLOOD PRESSURE

REACTIONS (1)
  - HEART RATE INCREASED [None]
